FAERS Safety Report 4325073-6 (Version None)
Quarter: 2004Q1

REPORT INFORMATION
  Report Type: 
  Country: None (occurrence: None)
  Receive Date: 20040323
  Receipt Date: 20040312
  Transmission Date: 20041129
  Serious: Yes (Death)
  Sender: FDA-Public Use
  Company Number: US-JNJFOC-20040303438

PATIENT
  Age: 90 Year
  Sex: Female

DRUGS (1)
  1. RISPERDAL [Suspect]
     Indication: ANXIETY
     Dosage: ORAL
     Route: 048
     Dates: end: 20040212

REACTIONS (1)
  - CARDIAC DISORDER [None]
